FAERS Safety Report 8211325-6 (Version None)
Quarter: 2012Q1

REPORT INFORMATION
  Report Type: 
  Country: None (occurrence: None)
  Receive Date: 20120315
  Receipt Date: 20120315
  Transmission Date: 20120608
  Serious: No
  Sender: FDA-Public Use
  Company Number: None

PATIENT
  Age: 79 Year
  Sex: Female
  Weight: 68.492 kg

DRUGS (1)
  1. ALBUTEROL [Suspect]
     Indication: CHRONIC OBSTRUCTIVE PULMONARY DISEASE
     Dosage: 1 VIAL
     Dates: start: 20120225, end: 20120225

REACTIONS (4)
  - DYSSTASIA [None]
  - ABDOMINAL DISTENSION [None]
  - PARAESTHESIA [None]
  - OEDEMA PERIPHERAL [None]
